FAERS Safety Report 19415137 (Version 2)
Quarter: 2021Q3

REPORT INFORMATION
  Report Type: Spontaneous
  Country: US (occurrence: US)
  Receive Date: 20210614
  Receipt Date: 20210924
  Transmission Date: 20211014
  Serious: No
  Sender: FDA-Public Use
  Company Number: US-PFIZER INC-2021350423

PATIENT
  Age: 60 Year
  Sex: Male

DRUGS (3)
  1. INLYTA [Suspect]
     Active Substance: AXITINIB
     Dosage: 3 MG, UNK
  2. BABY ASPIRIN [Suspect]
     Active Substance: ASPIRIN
     Dosage: UNK
  3. INLYTA [Suspect]
     Active Substance: AXITINIB
     Indication: RENAL CANCER STAGE IV
     Dosage: 5 MG, UNK

REACTIONS (7)
  - Neoplasm progression [Unknown]
  - Fatigue [Recovering/Resolving]
  - Blood calcium abnormal [Unknown]
  - Decreased appetite [Recovering/Resolving]
  - Hypertension [Unknown]
  - Blood creatinine abnormal [Unknown]
  - Insomnia [Unknown]
